FAERS Safety Report 5481201-0 (Version None)
Quarter: 2007Q4

REPORT INFORMATION
  Report Type: 
  Country: None (occurrence: None)
  Receive Date: 20071010
  Receipt Date: 20071002
  Transmission Date: 20080405
  Serious: Yes (Hospitalization, Other)
  Sender: FDA-Public Use
  Company Number: PHEH2007US12022

PATIENT
  Age: 80 Year
  Sex: Male

DRUGS (6)
  1. EXJADE [Suspect]
     Indication: IRON OVERLOAD
     Dosage: 1000 MG, QD
     Route: 048
     Dates: start: 20060524
  2. LASIX [Concomitant]
     Dosage: 20 MG, QD
  3. PROCARDIA XL [Concomitant]
     Dosage: 90 UNK, QHS
  4. ZESTRIL [Concomitant]
     Dosage: 10 MG, QD
  5. LEVAQUIN [Concomitant]
     Dosage: 500 MG, QD FOR 5 DAYS
  6. THALIDOMIDE [Concomitant]
     Dosage: 150 MG, QHS

REACTIONS (14)
  - BLAST CELLS PRESENT [None]
  - CHEST X-RAY ABNORMAL [None]
  - COUGH [None]
  - DYSPNOEA [None]
  - HAEMATOCRIT DECREASED [None]
  - HAEMOGLOBIN DECREASED [None]
  - LEUKAEMIA [None]
  - LUNG INFILTRATION [None]
  - PLATELET COUNT INCREASED [None]
  - PNEUMONIA [None]
  - PNEUMONITIS [None]
  - PULMONARY CONGESTION [None]
  - PYREXIA [None]
  - RHINORRHOEA [None]
